FAERS Safety Report 6596260-1 (Version None)
Quarter: 2010Q1

REPORT INFORMATION
  Report Type: 
  Country: None (occurrence: None)
  Receive Date: 20100219
  Receipt Date: 20100219
  Transmission Date: 20100710
  Serious: Yes (Hospitalization)
  Sender: FDA-Public Use
  Company Number: None

PATIENT
  Age: 72 Year
  Sex: Male

DRUGS (1)
  1. SULFAMETHOXAZOLE AND TRIMETHOPRIM [Suspect]
     Indication: INFECTION
     Dosage: 1 TAB BID PO
     Route: 048
     Dates: start: 20090828, end: 20090910

REACTIONS (7)
  - ANGIOEDEMA [None]
  - DRUG HYPERSENSITIVITY [None]
  - ERYTHEMA [None]
  - FOOD ALLERGY [None]
  - PENILE SWELLING [None]
  - PRURITUS [None]
  - SCROTAL SWELLING [None]
